FAERS Safety Report 8789629 (Version 1)
Quarter: 2012Q4

REPORT INFORMATION
  Report Type: Spontaneous
  Country: US (occurrence: None)
  Receive Date: 20120905
  Receipt Date: 20120905
  Transmission Date: 20130627
  Serious: Yes (Life-Threatening, Hospitalization)
  Sender: FDA-Public Use
  Company Number: 2012P1055092

PATIENT
  Age: 38 Year
  Sex: Male

DRUGS (1)
  1. FENTANYL [Suspect]
     Route: 048

REACTIONS (6)
  - Wrong technique in drug usage process [None]
  - Mental status changes [None]
  - Overdose [None]
  - Respiratory depression [None]
  - Drug screen positive [None]
  - Oxygen saturation decreased [None]
